FAERS Safety Report 6068662-3 (Version None)
Quarter: 2009Q1

REPORT INFORMATION
  Report Type: 
  Country: None (occurrence: None)
  Receive Date: 20090206
  Receipt Date: 20090202
  Transmission Date: 20090719
  Serious: Yes (Hospitalization)
  Sender: FDA-Public Use
  Company Number: A0766138A

PATIENT
  Sex: Female

DRUGS (15)
  1. FLONASE [Suspect]
     Indication: DRUG USE FOR UNKNOWN INDICATION
     Dosage: 2SPR PER DAY
     Route: 045
  2. FLOVENT [Suspect]
     Indication: DRUG USE FOR UNKNOWN INDICATION
     Dosage: 2SPR UNKNOWN
     Route: 055
  3. PAXIL CR [Suspect]
     Indication: DRUG USE FOR UNKNOWN INDICATION
     Dosage: 25MG PER DAY
     Route: 048
  4. WARFARIN SODIUM [Concomitant]
  5. TRICOR [Concomitant]
  6. IRON [Concomitant]
  7. HYDRALAZINE HCL [Concomitant]
  8. LASIX [Concomitant]
  9. ACTONEL [Concomitant]
  10. COZAAR [Concomitant]
  11. ASPIRIN [Concomitant]
  12. INSULIN [Concomitant]
  13. MULTI-VITAMIN [Concomitant]
  14. LIPITOR [Concomitant]
  15. XALATAN [Concomitant]

REACTIONS (4)
  - AMNESIA [None]
  - DYSARTHRIA [None]
  - FALL [None]
  - TRANSIENT ISCHAEMIC ATTACK [None]
